FAERS Safety Report 9868769 (Version 2)
Quarter: 2014Q1

REPORT INFORMATION
  Report Type: Report from Study
  Country: US (occurrence: US)
  Receive Date: 20140204
  Receipt Date: 20140204
  Transmission Date: 20141002
  Serious: Yes (Other)
  Sender: FDA-Public Use
  Company Number: US-ABBVIE-13P-163-1106500-00

PATIENT
  Age: 41 Year
  Sex: Female
  Weight: 100.79 kg

DRUGS (14)
  1. HUMIRA [Suspect]
     Indication: RHEUMATOID ARTHRITIS
     Dates: start: 201212, end: 201305
  2. HUMIRA [Suspect]
     Dates: start: 201311
  3. HUMIRA [Suspect]
     Dates: start: 201312
  4. METHOTREXATE [Concomitant]
     Indication: RHEUMATOID ARTHRITIS
  5. SYNTHROID [Concomitant]
     Indication: HYPOTHYROIDISM
  6. FOLIC ACID [Concomitant]
     Indication: VITAMIN SUPPLEMENTATION
  7. VITAMIN D [Concomitant]
     Indication: VITAMIN D DECREASED
  8. VITAMIN D [Concomitant]
  9. METFORMIN [Concomitant]
     Indication: DIABETES MELLITUS
  10. XOPINEX PUMP [Concomitant]
     Indication: ASTHMA
  11. XOPINEX LIQUID [Concomitant]
     Indication: ASTHMA
  12. NASONEX [Concomitant]
     Indication: HYPERSENSITIVITY
  13. TYLENOL [Concomitant]
     Indication: ARTHRALGIA
  14. ALEVE [Concomitant]
     Indication: ARTHRALGIA

REACTIONS (16)
  - Cyst [Unknown]
  - Abscess [Recovering/Resolving]
  - Pharyngitis [Recovered/Resolved]
  - Pharyngitis streptococcal [Recovered/Resolved]
  - Weight decreased [Recovered/Resolved]
  - Nasopharyngitis [Recovered/Resolved]
  - Sinusitis [Recovered/Resolved]
  - Upper respiratory tract infection [Recovered/Resolved]
  - Back pain [Unknown]
  - Swelling [Unknown]
  - Back pain [Unknown]
  - Nasopharyngitis [Recovered/Resolved]
  - Decreased appetite [Unknown]
  - Nausea [Unknown]
  - Diarrhoea [Unknown]
  - Abdominal discomfort [Unknown]
